FAERS Safety Report 13387352 (Version 2)
Quarter: 2017Q2

REPORT INFORMATION
  Report Type: Spontaneous
  Country: FR (occurrence: FR)
  Receive Date: 20170330
  Receipt Date: 20170405
  Transmission Date: 20170830
  Serious: Yes (Other)
  Sender: FDA-Public Use
  Company Number: FR-PFIZER INC-2017131281

PATIENT
  Age: 68 Year
  Sex: Male

DRUGS (2)
  1. THYROZOL [Suspect]
     Active Substance: METHIMAZOLE
     Indication: BASEDOW^S DISEASE
     Dosage: 20 MG, 1X/DAY
     Route: 048
     Dates: end: 20170301
  2. SOLU-MEDROL [Suspect]
     Active Substance: METHYLPREDNISOLONE SODIUM SUCCINATE
     Indication: ENDOCRINE OPHTHALMOPATHY
     Dosage: 500 UG, WEEKLY
     Route: 040
     Dates: start: 20170125, end: 20170222

REACTIONS (1)
  - Hepatitis [Recovering/Resolving]
